FAERS Safety Report 25038142 (Version 1)
Quarter: 2025Q1

REPORT INFORMATION
  Report Type: Spontaneous
  Country: BA (occurrence: BA)
  Receive Date: 20250304
  Receipt Date: 20250304
  Transmission Date: 20250409
  Serious: Yes (Other)
  Sender: BAYER HEALTHCARE PHARMACEUTICALS INC.
  Company Number: BA-BAYER-2025A026594

PATIENT
  Sex: Female

DRUGS (2)
  1. FINERENONE [Suspect]
     Active Substance: FINERENONE
     Indication: Chronic kidney disease
  2. FINERENONE [Suspect]
     Active Substance: FINERENONE
     Indication: Type 2 diabetes mellitus

REACTIONS (8)
  - Ulcer haemorrhage [None]
  - Nephrogenic anaemia [None]
  - Blood creatinine increased [None]
  - Blood potassium increased [None]
  - Asthenia [None]
  - Malaise [None]
  - Proteinuria [None]
  - Feeding disorder [None]

NARRATIVE: CASE EVENT DATE: 20250201
